FAERS Safety Report 8013762-1 (Version None)
Quarter: 2011Q4

REPORT INFORMATION
  Report Type: 
  Country: None (occurrence: None)
  Receive Date: 20111229
  Receipt Date: 20111216
  Transmission Date: 20120403
  Serious: Yes (Hospitalization)
  Sender: FDA-Public Use
  Company Number: US-ELI_LILLY_AND_COMPANY-US201006001055

PATIENT
  Sex: Female
  Weight: 49.887 kg

DRUGS (7)
  1. FORTEO [Suspect]
     Dosage: 20 UG, QD
     Route: 065
  2. LIPITOR [Concomitant]
  3. FORTEO [Suspect]
     Dosage: 20 UG, QD
     Route: 065
  4. FORTEO [Suspect]
     Dosage: 20 UG, QD
     Route: 065
  5. FORTEO [Suspect]
     Indication: OSTEOPOROSIS
     Dosage: 20 UG, QD
     Route: 065
     Dates: start: 20100526
  6. FORTEO [Suspect]
     Dosage: 20 UG, QD
     Route: 065
  7. PLAVIX [Concomitant]

REACTIONS (10)
  - NEPHROLITHIASIS [None]
  - RESTLESSNESS [None]
  - DIZZINESS [None]
  - ASTHENIA [None]
  - CATARACT [None]
  - CHOLELITHIASIS [None]
  - ARTHRITIS [None]
  - MALAISE [None]
  - INJECTION SITE HAEMATOMA [None]
  - PAIN [None]
